FAERS Safety Report 5941617-2 (Version None)
Quarter: 2008Q4

REPORT INFORMATION
  Report Type: 
  Country: None (occurrence: None)
  Receive Date: 20081104
  Receipt Date: 20081104
  Transmission Date: 20090506
  Serious: Yes (Other)
  Sender: FDA-Public Use
  Company Number: None

PATIENT
  Age: 50 Year
  Sex: Female
  Weight: 77.1115 kg

DRUGS (2)
  1. SINGULAIR [Suspect]
     Indication: COUGH
     Dosage: 10MG 1X DAILY PO
     Route: 048
     Dates: start: 20080201, end: 20080227
  2. ADVAIR DISKUS 100/50 [Concomitant]

REACTIONS (2)
  - DEPRESSION [None]
  - SUICIDAL IDEATION [None]
